FAERS Safety Report 7706715-1 (Version None)
Quarter: 2011Q3

REPORT INFORMATION
  Report Type: 
  Country: None (occurrence: None)
  Receive Date: 20110824
  Receipt Date: 20110815
  Transmission Date: 20111222
  Serious: Yes (Other)
  Sender: FDA-Public Use
  Company Number: US-JNJFOC-20110305252

PATIENT
  Sex: Male
  Weight: 86.64 kg

DRUGS (5)
  1. INVEGA SUSTENNA [Suspect]
     Route: 030
     Dates: start: 20100720, end: 20100720
  2. INVEGA SUSTENNA [Suspect]
     Indication: PSYCHOTIC DISORDER
     Route: 030
     Dates: start: 20100713, end: 20100713
  3. INVEGA SUSTENNA [Suspect]
     Route: 030
     Dates: start: 20100817, end: 20101111
  4. DEPAKOTE ER [Suspect]
     Indication: MOOD SWINGS
     Dates: start: 20100720, end: 20101111
  5. DEPAKOTE ER [Suspect]
     Indication: DRUG THERAPY
     Dates: start: 20100720, end: 20101111

REACTIONS (5)
  - AGRANULOCYTOSIS [None]
  - RED BLOOD CELL COUNT DECREASED [None]
  - WHITE BLOOD CELL COUNT DECREASED [None]
  - PLATELET COUNT DECREASED [None]
  - PRODUCT QUALITY ISSUE [None]
